FAERS Safety Report 19228223 (Version 1)
Quarter: 2021Q2

REPORT INFORMATION
  Report Type: Spontaneous
  Country: IT (occurrence: IT)
  Receive Date: 20210507
  Receipt Date: 20210507
  Transmission Date: 20210717
  Serious: Yes (Other)
  Sender: FDA-Public Use
  Company Number: IT-TEVA-2021-IT-1907745

PATIENT
  Age: 68 Year
  Sex: Female
  Weight: 45 kg

DRUGS (3)
  1. RIFAMPICIN [Concomitant]
     Active Substance: RIFAMPIN
     Indication: MYCOBACTERIAL INFECTION
     Dosage: 450MILLIGRAM
     Route: 048
     Dates: start: 20200101, end: 20210308
  2. TOBRAMICINA TEVA 300 MG/5 ML SOLUCION PARA INHALACION POR NEBULIZADOR [Suspect]
     Active Substance: TOBRAMYCIN
     Dosage: 1DOSAGEFORM
     Route: 055
     Dates: start: 20210223, end: 20210308
  3. ETHAMBUTOL [Concomitant]
     Active Substance: ETHAMBUTOL HYDROCHLORIDE
     Indication: MYCOBACTERIAL INFECTION
     Dosage: 800MILLIGRAM
     Route: 048
     Dates: start: 20200101, end: 20210308

REACTIONS (1)
  - Cough [Recovered/Resolved]

NARRATIVE: CASE EVENT DATE: 20210309
